FAERS Safety Report 8211334-7 (Version None)
Quarter: 2012Q1

REPORT INFORMATION
  Report Type: 
  Country: None (occurrence: None)
  Receive Date: 20120315
  Receipt Date: 20120315
  Transmission Date: 20120608
  Serious: Yes (Life-Threatening)
  Sender: FDA-Public Use
  Company Number: None

PATIENT
  Age: 57 Year
  Sex: Male
  Weight: 143 kg

DRUGS (10)
  1. ALBUTETOL/IPRATROPIUM MDI [Concomitant]
     Route: 048
  2. CLONIDINE [Concomitant]
     Route: 048
  3. PRECEDEX [Suspect]
     Indication: SEDATION
     Dosage: 0.2 MCG/KG/HOUR
     Route: 041
     Dates: start: 20120302, end: 20120307
  4. FAMOTIDINE [Concomitant]
     Route: 048
  5. AMIODARONE HYDROCHLORIDE [Concomitant]
     Route: 048
  6. VALPROIC ACID [Concomitant]
     Route: 048
  7. DILTIAZEM HCL [Concomitant]
     Route: 048
  8. DEXMEDETOMODINE HYDROCHLORIDE [Concomitant]
     Route: 042
  9. FUROSEMIDE [Concomitant]
     Route: 042
  10. HEPARIN [Concomitant]
     Route: 058

REACTIONS (6)
  - PULSELESS ELECTRICAL ACTIVITY [None]
  - HYPOXIC-ISCHAEMIC ENCEPHALOPATHY [None]
  - CARDIAC ARREST [None]
  - PULSE ABSENT [None]
  - AGITATION [None]
  - BRADYCARDIA [None]
